FAERS Safety Report 5747957-4 (Version None)
Quarter: 2008Q2

REPORT INFORMATION
  Report Type: 
  Country: None (occurrence: None)
  Receive Date: 20080523
  Receipt Date: 20080502
  Transmission Date: 20081010
  Serious: No
  Sender: FDA-Public Use
  Company Number: US-JNJFOC-20080500922

PATIENT
  Age: 36 Year
  Sex: Male
  Weight: 58.97 kg

DRUGS (7)
  1. INVEGA [Suspect]
     Indication: SCHIZOPHRENIA
     Route: 048
  2. NIACIN [Concomitant]
     Indication: MEDICAL DIET
  3. VITAMIN B COMPLEX CAP [Concomitant]
     Indication: MEDICAL DIET
     Route: 048
  4. VITAMIN B-12 [Concomitant]
     Indication: MEDICAL DIET
     Route: 048
  5. MAGNESIUM [Concomitant]
     Indication: MEDICAL DIET
     Route: 048
  6. ZINC [Concomitant]
     Indication: MEDICAL DIET
     Route: 048
  7. FISH OIL [Concomitant]
     Indication: MEDICAL DIET
     Route: 048

REACTIONS (3)
  - INSOMNIA [None]
  - SCHIZOPHRENIA [None]
  - SMOKER [None]
